FAERS Safety Report 18379675 (Version 1)
Quarter: 2020Q4

REPORT INFORMATION
  Report Type: Spontaneous
  Country: US (occurrence: US)
  Receive Date: 20201014
  Receipt Date: 20201014
  Transmission Date: 20210114
  Serious: Yes (Hospitalization, Other)
  Sender: FDA-Public Use
  Company Number: US-HIKMA PHARMACEUTICALS USA INC.-US-H14001-20-04670

PATIENT
  Sex: Female

DRUGS (1)
  1. LORAZEPAM. [Suspect]
     Active Substance: LORAZEPAM
     Indication: PRODUCT USED FOR UNKNOWN INDICATION
     Dosage: ONE INJECTION (ALSO REPORTED AS TWO INJECTIONS)
     Route: 065
     Dates: start: 2018, end: 2018

REACTIONS (10)
  - Myocardial infarction [Not Recovered/Not Resolved]
  - Alopecia [Not Recovered/Not Resolved]
  - Obesity [Not Recovered/Not Resolved]
  - Reflexes abnormal [Not Recovered/Not Resolved]
  - Pain [Not Recovered/Not Resolved]
  - Irregular breathing [Not Recovered/Not Resolved]
  - Lipoma [Not Recovered/Not Resolved]
  - Breast cancer [Not Recovered/Not Resolved]
  - Hypertension [Not Recovered/Not Resolved]
  - Pituitary-dependent Cushing^s syndrome [Not Recovered/Not Resolved]

NARRATIVE: CASE EVENT DATE: 2018
